FAERS Safety Report 4397727-7 (Version None)
Quarter: 2004Q2

REPORT INFORMATION
  Report Type: 
  Country: None (occurrence: None)
  Receive Date: 20040621
  Receipt Date: 20040323
  Transmission Date: 20050107
  Serious: Yes (Death)
  Sender: FDA-Public Use
  Company Number: USA-2004-0014021

PATIENT
  Age: 54 Year
  Sex: Male

DRUGS (9)
  1. OXYCONTIN [Suspect]
     Indication: PAIN
     Dosage: 40 MG, BID
     Dates: start: 20030801, end: 20040101
  2. SOMA [Concomitant]
  3. ACTIQ [Concomitant]
  4. TRAZODONE HCL [Concomitant]
  5. FOLIC ACID [Concomitant]
  6. KEPPRA [Concomitant]
  7. FLONASE [Concomitant]
  8. ALLEGRA [Concomitant]
  9. ALBUTEROL [Concomitant]

REACTIONS (2)
  - ACCIDENTAL OVERDOSE [None]
  - INADEQUATE ANALGESIA [None]
